FAERS Safety Report 15334966 (Version 1)
Quarter: 2018Q3

REPORT INFORMATION
  Report Type: Spontaneous
  Country: CH (occurrence: CH)
  Receive Date: 20180830
  Receipt Date: 20180830
  Transmission Date: 20181010
  Serious: Yes (Hospitalization)
  Sender: FDA-Public Use
  Company Number: -ASTRAZENECA-2018SF06858

PATIENT
  Age: 92 Year
  Sex: Female

DRUGS (10)
  1. ATORVASTATIN [Suspect]
     Active Substance: ATORVASTATIN
     Route: 048
  2. METOJECT [Suspect]
     Active Substance: METHOTREXATE SODIUM
     Indication: ERYTHRODERMIC PSORIASIS
     Route: 058
     Dates: start: 2017
  3. XANAX [Concomitant]
     Active Substance: ALPRAZOLAM
     Route: 048
  4. ENALAPRIL [Suspect]
     Active Substance: ENALAPRIL
     Route: 048
  5. REMERON [Concomitant]
     Active Substance: MIRTAZAPINE
     Route: 048
  6. SYMBICORT [Concomitant]
     Active Substance: BUDESONIDE\FORMOTEROL FUMARATE DIHYDRATE
     Dosage: TWICE A DAY
     Route: 055
  7. NEXIUM MUPS [Suspect]
     Active Substance: ESOMEPRAZOLE MAGNESIUM
     Route: 048
  8. ASPIRIN CARDIO [Suspect]
     Active Substance: ASPIRIN
     Indication: EMBOLIC STROKE
     Route: 048
  9. BETASERC [Concomitant]
     Active Substance: BETAHISTINE
     Route: 048
  10. SPIRIVA [Concomitant]
     Active Substance: TIOTROPIUM BROMIDE MONOHYDRATE
     Route: 055

REACTIONS (1)
  - Eosinophilic colitis [Not Recovered/Not Resolved]

NARRATIVE: CASE EVENT DATE: 201803
